FAERS Safety Report 9699827 (Version 2)
Quarter: 2014Q1

REPORT INFORMATION
  Report Type: Report from Study
  Country: US (occurrence: US)
  Receive Date: 20131120
  Receipt Date: 20140120
  Transmission Date: 20141002
  Serious: Yes (Other)
  Sender: FDA-Public Use
  Company Number: US-ROCHE-1307134

PATIENT
  Sex: 0

DRUGS (1)
  1. ALTEPLASE [Suspect]
     Indication: INTRAVENTRICULAR HAEMORRHAGE
     Dosage: 1 - 2 MG ONCE INTRAVENTRICULAR THROUGH EXTERNAL VENTRICULAR DRAIN (1 IN 1 D)
     Route: 050

REACTIONS (1)
  - CNS ventriculitis [Recovered/Resolved]
